FAERS Safety Report 8190983-9 (Version None)
Quarter: 2012Q1

REPORT INFORMATION
  Report Type: 
  Country: None (occurrence: None)
  Receive Date: 20120221
  Receipt Date: 20111116
  Transmission Date: 20120608
  Serious: No
  Sender: FDA-Public Use
  Company Number: 1000025591

PATIENT
  Age: 76 Year
  Sex: Male

DRUGS (10)
  1. TAMSULOSIN (TAMSULOSIN) (TAMSULOSIN) [Concomitant]
  2. BABY ASPIRIN (ACETYLSALICYLIC ACID) (ACETYLSALICYLIC ACID) [Concomitant]
  3. VIIBRYD [Suspect]
     Indication: DEPRESSION
     Dosage: 10 MG (10 MG, 1 IN 1 D), ORAL; 20 MG (20 MG, 1 IN 1 D), ORAL; 40 MG (40 MG, 1 IN 1 D),ORAL
     Route: 048
     Dates: start: 20110101, end: 20110101
  4. VIIBRYD [Suspect]
     Indication: DEPRESSION
     Dosage: 10 MG (10 MG, 1 IN 1 D), ORAL; 20 MG (20 MG, 1 IN 1 D), ORAL; 40 MG (40 MG, 1 IN 1 D),ORAL
     Route: 048
     Dates: start: 20110101
  5. VIIBRYD [Suspect]
     Indication: DEPRESSION
     Dosage: 10 MG (10 MG, 1 IN 1 D), ORAL; 20 MG (20 MG, 1 IN 1 D), ORAL; 40 MG (40 MG, 1 IN 1 D),ORAL
     Route: 048
     Dates: start: 20110101, end: 20110101
  6. SIMVASTATIN [Concomitant]
  7. LORAZEPAM [Concomitant]
  8. ZOLPIDEM [Concomitant]
  9. LISINOPRIL (LISINOPRIL) (LISINIOPRIL) [Concomitant]
  10. DIGOXIN [Concomitant]

REACTIONS (2)
  - HALLUCINATION [None]
  - TREMOR [None]
